FAERS Safety Report 6481785-X (Version None)
Quarter: 2009Q4

REPORT INFORMATION
  Report Type: 
  Country: None (occurrence: None)
  Receive Date: 20091208
  Receipt Date: 20090325
  Transmission Date: 20100525
  Serious: No
  Sender: FDA-Public Use
  Company Number: US-AMGEN-KDL340167

PATIENT
  Sex: Female

DRUGS (1)
  1. ENBREL [Suspect]
     Indication: DRUG USE FOR UNKNOWN INDICATION
     Route: 058

REACTIONS (8)
  - ACCIDENT [None]
  - INJECTION SITE ERYTHEMA [None]
  - INJECTION SITE INDURATION [None]
  - INJECTION SITE PAIN [None]
  - INJECTION SITE PRURITUS [None]
  - INJECTION SITE RASH [None]
  - INJECTION SITE REACTION [None]
  - MENISCUS LESION [None]
